FAERS Safety Report 9800845 (Version 2)
Quarter: 2014Q1

REPORT INFORMATION
  Report Type: Spontaneous
  Country: US (occurrence: US)
  Receive Date: 20140107
  Receipt Date: 20140212
  Transmission Date: 20141002
  Serious: No
  Sender: FDA-Public Use
  Company Number: US-PFIZER INC-2014001371

PATIENT
  Age: 68 Year
  Sex: Female
  Weight: 57.6 kg

DRUGS (2)
  1. LIOTHYRONINE SODIUM [Suspect]
     Indication: THYROID DISORDER
     Dosage: UNK
     Dates: start: 2013, end: 2013
  2. SYNTHROID [Concomitant]
     Indication: HYPOTHYROIDISM
     Dosage: UNK

REACTIONS (3)
  - Muscle spasms [Not Recovered/Not Resolved]
  - Arrhythmia [Not Recovered/Not Resolved]
  - Drug intolerance [Unknown]
